FAERS Safety Report 18247379 (Version 2)
Quarter: 2020Q4

REPORT INFORMATION
  Report Type: Spontaneous
  Country: US (occurrence: US)
  Receive Date: 20200909
  Receipt Date: 20201006
  Transmission Date: 20210113
  Serious: Yes (Other)
  Sender: FDA-Public Use
  Company Number: US-INTRA-CELLULAR THERAPIES, INC.-2020ICT00107

PATIENT
  Age: 33 Year
  Sex: Male
  Weight: 119.73 kg

DRUGS (1)
  1. CAPLYTA [Suspect]
     Active Substance: LUMATEPERONE
     Indication: SCHIZOPHRENIA
     Dosage: 42 MG, 1X/DAY
     Route: 048
     Dates: start: 202008, end: 202008

REACTIONS (5)
  - Hallucination [Unknown]
  - Head discomfort [Recovered/Resolved]
  - Headache [Recovered/Resolved]
  - Skin burning sensation [Recovered/Resolved]
  - Blood pressure increased [Unknown]

NARRATIVE: CASE EVENT DATE: 202008
